FAERS Safety Report 25607796 (Version 1)
Quarter: 2025Q3

REPORT INFORMATION
  Report Type: Spontaneous
  Country: JP (occurrence: JP)
  Receive Date: 20250725
  Receipt Date: 20250725
  Transmission Date: 20251021
  Serious: Yes (Other)
  Sender: DAIICHI
  Company Number: JP-DSJP-DSJ-2023-108842

PATIENT
  Age: 7 Decade
  Sex: Female

DRUGS (2)
  1. EDOXABAN TOSYLATE [Suspect]
     Active Substance: EDOXABAN TOSYLATE
     Indication: Embolism
     Dosage: 30 MG, QD
     Route: 048
  2. GIMERACIL\OTERACIL\TEGAFUR [Concomitant]
     Active Substance: GIMERACIL\OTERACIL POTASSIUM\TEGAFUR
     Route: 065

REACTIONS (1)
  - Metastases to peritoneum [Not Recovered/Not Resolved]
